FAERS Safety Report 17875282 (Version 1)
Quarter: 2020Q2

REPORT INFORMATION
  Report Type: Spontaneous
  Country: CA (occurrence: CA)
  Receive Date: 20200609
  Receipt Date: 20200609
  Transmission Date: 20200714
  Serious: Yes (Hospitalization, Other)
  Sender: FDA-Public Use
  Company Number: CA-ACCORD-184591

PATIENT
  Age: 56 Year
  Sex: Male

DRUGS (11)
  1. GRANISETRON [Concomitant]
     Active Substance: GRANISETRON
  2. FAMOTIDINE. [Concomitant]
     Active Substance: FAMOTIDINE
  3. ONDANSETRON [Concomitant]
     Active Substance: ONDANSETRON
  4. DEXAMETHASONE. [Concomitant]
     Active Substance: DEXAMETHASONE
     Route: 014
  5. ZOLEDRONIC ACID [Concomitant]
     Active Substance: ZOLEDRONIC ACID
  6. CARBOPLATIN. [Suspect]
     Active Substance: CARBOPLATIN
     Indication: TRANSITIONAL CELL CARCINOMA
     Dosage: LIQUID INTRAVENOUS
     Route: 042
  7. PROCHLORPERAZINE. [Concomitant]
     Active Substance: PROCHLORPERAZINE
  8. PACLITAXEL/PACLITAXEL LIPOSOME [Suspect]
     Active Substance: PACLITAXEL
     Indication: TRANSITIONAL CELL CARCINOMA
     Route: 042
  9. CALCIUM/COLECALCIFEROL [Concomitant]
     Active Substance: CALCIUM\CHOLECALCIFEROL
  10. LIDOCAINE. [Concomitant]
     Active Substance: LIDOCAINE
  11. GEMCITABINE/GEMCITABINE HYDROCHLORIDE [Suspect]
     Active Substance: GEMCITABINE\GEMCITABINE HYDROCHLORIDE
     Indication: TRANSITIONAL CELL CARCINOMA

REACTIONS (2)
  - Pancytopenia [Unknown]
  - Off label use [Unknown]
